FAERS Safety Report 10342057 (Version 1)
Quarter: 2014Q3

REPORT INFORMATION
  Report Type: Spontaneous
  Country: SA (occurrence: None)
  Receive Date: 20140723
  Receipt Date: 20140723
  Transmission Date: 20150326
  Serious: Yes (Other)
  Sender: FDA-Public Use
  Company Number: 2444943

PATIENT
  Age: 24 Year
  Sex: Female

DRUGS (2)
  1. CYTARABINE. [Suspect]
     Active Substance: CYTARABINE
     Indication: ACUTE MYELOID LEUKAEMIA
  2. DOXORUBICIN [Suspect]
     Active Substance: DOXORUBICIN
     Indication: ACUTE MYELOID LEUKAEMIA

REACTIONS (3)
  - Exposure during pregnancy [None]
  - Abortion spontaneous [None]
  - Acute myeloid leukaemia [None]
